FAERS Safety Report 15283746 (Version 4)
Quarter: 2018Q4

REPORT INFORMATION
  Report Type: Spontaneous
  Country: US (occurrence: US)
  Receive Date: 20180816
  Receipt Date: 20181120
  Transmission Date: 20190204
  Serious: No
  Sender: FDA-Public Use
  Company Number: US-ASTRAZENECA-2018SF02799

PATIENT
  Age: 25461 Day
  Sex: Male
  Weight: 77.1 kg

DRUGS (12)
  1. ROSUVASTATIN CALCIUM. [Suspect]
     Active Substance: ROSUVASTATIN CALCIUM
     Route: 048
     Dates: start: 201805
  2. GLIPIZIDE. [Concomitant]
     Active Substance: GLIPIZIDE
     Indication: DIABETES MELLITUS
     Route: 065
  3. BABY ASPIRIN [Concomitant]
     Active Substance: ASPIRIN
     Route: 065
  4. COENZYMES [Concomitant]
     Dosage: UNKNOWN
     Route: 065
  5. VITAMIN D [Concomitant]
     Active Substance: CHOLECALCIFEROL
     Dosage: 1000.0IU UNKNOWN
     Route: 065
  6. BYDUREON BCISE [Suspect]
     Active Substance: EXENATIDE
     Indication: TYPE 2 DIABETES MELLITUS
     Route: 058
     Dates: start: 20180728, end: 20180804
  7. BYETTA [Suspect]
     Active Substance: EXENATIDE
     Route: 058
     Dates: start: 20180802, end: 20180820
  8. METFORMIN [Concomitant]
     Active Substance: METFORMIN HYDROCHLORIDE
     Indication: DIABETES MELLITUS
     Route: 065
  9. VICTOZA [Concomitant]
     Active Substance: LIRAGLUTIDE
  10. JANUVIA [Concomitant]
     Active Substance: SITAGLIPTIN PHOSPHATE
  11. BYDUREON BCISE [Suspect]
     Active Substance: EXENATIDE
     Indication: TYPE 2 DIABETES MELLITUS
     Route: 058
     Dates: start: 20180802, end: 20180816
  12. BYDUREON [Suspect]
     Active Substance: EXENATIDE
     Indication: TYPE 2 DIABETES MELLITUS
     Route: 058
     Dates: start: 20180817, end: 20180820

REACTIONS (8)
  - Diabetes mellitus inadequate control [Unknown]
  - Injection site haemorrhage [Recovered/Resolved]
  - Drug ineffective [Unknown]
  - Injection site pain [Recovered/Resolved]
  - Product dose omission [Unknown]
  - Intentional device misuse [Unknown]
  - Device malfunction [Unknown]
  - Injection site urticaria [Unknown]

NARRATIVE: CASE EVENT DATE: 20180728
